FAERS Safety Report 18773926 (Version 3)
Quarter: 2021Q3

REPORT INFORMATION
  Report Type: Report from Study
  Country: None (occurrence: US)
  Receive Date: 20210122
  Receipt Date: 20210901
  Transmission Date: 20211014
  Serious: Yes (Hospitalization, Other)
  Sender: FDA-Public Use
  Company Number: US-ABBVIE-21K-163-3738507-00

PATIENT
  Sex: Female

DRUGS (1)
  1. CREON [Suspect]
     Active Substance: PANCRELIPASE AMYLASE\PANCRELIPASE LIPASE\PANCRELIPASE PROTEASE
     Indication: PRODUCT USED FOR UNKNOWN INDICATION
     Route: 048

REACTIONS (7)
  - Hysterectomy [Unknown]
  - Pancreas transplant [Unknown]
  - Thyroidectomy [Unknown]
  - Tendon sheath incision [Unknown]
  - Knee arthroplasty [Unknown]
  - Carpal tunnel decompression [Unknown]
  - Hospitalisation [Unknown]

NARRATIVE: CASE EVENT DATE: 1987
